FAERS Safety Report 4433484-3 (Version None)
Quarter: 2004Q3

REPORT INFORMATION
  Report Type: 
  Country: None (occurrence: None)
  Receive Date: 20040826
  Receipt Date: 20040817
  Transmission Date: 20050211
  Serious: Yes (Death, Hospitalization)
  Sender: FDA-Public Use
  Company Number: NL-JNJFOC-20040104820

PATIENT
  Age: 76 Year
  Sex: Female

DRUGS (9)
  1. REMICADE [Suspect]
     Indication: RHEUMATOID ARTHRITIS
     Route: 042
  2. PREDNISOLONE [Concomitant]
     Indication: RHEUMATOID ARTHRITIS
  3. DICLOFENAC [Concomitant]
  4. NORVASC [Concomitant]
     Indication: HYPERTENSION
  5. OMEPRAZOLE [Concomitant]
  6. ACTENOL [Concomitant]
  7. HYDROCORTISONE [Concomitant]
     Route: 061
  8. CACIT [Concomitant]
  9. CACIT [Concomitant]

REACTIONS (6)
  - ARTHRITIS BACTERIAL [None]
  - CARDIAC ARREST [None]
  - MULTI-ORGAN FAILURE [None]
  - RESPIRATORY FAILURE [None]
  - SEPSIS [None]
  - STAPHYLOCOCCAL INFECTION [None]
